FAERS Safety Report 21183369 (Version 2)
Quarter: 2022Q3

REPORT INFORMATION
  Report Type: Report from Study
  Country: US (occurrence: US)
  Receive Date: 20220808
  Receipt Date: 20220905
  Transmission Date: 20221027
  Serious: Yes (Hospitalization, Other)
  Sender: FDA-Public Use
  Company Number: US-TAKEDA-2022TUS052234

PATIENT
  Sex: Female

DRUGS (4)
  1. TEDUGLUTIDE [Suspect]
     Active Substance: TEDUGLUTIDE
     Indication: Short-bowel syndrome
     Dosage: 0.440 MILLILITER, QD
     Route: 050
     Dates: start: 20220729
  2. TEDUGLUTIDE [Suspect]
     Active Substance: TEDUGLUTIDE
     Indication: Short-bowel syndrome
     Dosage: 0.440 MILLILITER, QD
     Route: 050
     Dates: start: 20220729
  3. TEDUGLUTIDE [Suspect]
     Active Substance: TEDUGLUTIDE
     Indication: Short-bowel syndrome
     Dosage: 0.440 MILLILITER, QD
     Route: 050
     Dates: start: 20220729
  4. TEDUGLUTIDE [Suspect]
     Active Substance: TEDUGLUTIDE
     Indication: Short-bowel syndrome
     Dosage: 0.440 MILLILITER, QD
     Route: 050
     Dates: start: 20220729

REACTIONS (6)
  - Rhabdomyolysis [Unknown]
  - Fall [Unknown]
  - Facial bones fracture [Unknown]
  - Cervical vertebral fracture [Unknown]
  - Anaemia [Unknown]
  - Gait disturbance [Recovering/Resolving]
